FAERS Safety Report 4340800-X (Version None)
Quarter: 2004Q2

REPORT INFORMATION
  Report Type: 
  Country: None (occurrence: None)
  Receive Date: 20040419
  Receipt Date: 20021115
  Transmission Date: 20050107
  Serious: No
  Sender: FDA-Public Use
  Company Number: US-GLAXOSMITHKLINE-A0386800A

PATIENT
  Age: 17 Year
  Sex: Female
  Weight: 74.5 kg

DRUGS (5)
  1. ESKALITH CR [Suspect]
     Dosage: 450MG TWICE PER DAY
     Route: 048
     Dates: start: 20030103
  2. WELLBUTRIN SR [Concomitant]
     Indication: DEPRESSION
     Dosage: 100MG TWICE PER DAY
     Route: 048
  3. SEROQUEL [Concomitant]
     Dosage: 100MG THREE TIMES PER DAY
     Route: 048
  4. MIRCETTE [Concomitant]
     Indication: ORAL CONTRACEPTION
     Route: 048
  5. CLARITIN-D [Concomitant]
     Route: 048

REACTIONS (1)
  - STOOL ANALYSIS ABNORMAL [None]
